FAERS Safety Report 12947082 (Version 2)
Quarter: 2016Q4

REPORT INFORMATION
  Report Type: Spontaneous
  Country: PT (occurrence: PT)
  Receive Date: 20161116
  Receipt Date: 20161130
  Transmission Date: 20170207
  Serious: Yes (Hospitalization, Other)
  Sender: FDA-Public Use
  Company Number: PT-009507513-1611PRT006193

PATIENT
  Age: 71 Year
  Sex: Male

DRUGS (9)
  1. FLUDEX [Concomitant]
     Active Substance: INDAPAMIDE
     Dosage: 1 TABLET AT BREAKFAST
  2. DILTIAZEM. [Concomitant]
     Active Substance: DILTIAZEM
     Dosage: 1 TABLET AT DINNER
  3. OLMESARTAN MEDOXOMIL. [Concomitant]
     Active Substance: OLMESARTAN MEDOXOMIL
     Dosage: 1 TABLET AT BREAKFAST (STRENGTH REPORTED AS 20+12.5 (UNITS NOT PROVIDED)
  4. AMLODIPINE [Concomitant]
     Active Substance: AMLODIPINE BESYLATE
     Dosage: 1 TABLET AT BREAKFAST
  5. ZYLORIC [Concomitant]
     Active Substance: ALLOPURINOL
     Dosage: 1 TABLET AT LUNCH
  6. PRAVAFENIX [Concomitant]
     Active Substance: FENOFIBRATE\PRAVASTATIN
     Dosage: 1 TABLET A DAY
  7. CALCITRIOL. [Concomitant]
     Active Substance: CALCITRIOL
     Dosage: 1 TABLET AT LUNCH
  8. NEBIVOLOL. [Concomitant]
     Active Substance: NEBIVOLOL
     Dosage: 1 TABLET AT BREAKFAST
  9. KEYTRUDA [Suspect]
     Active Substance: PEMBROLIZUMAB
     Indication: METASTATIC MALIGNANT MELANOMA
     Dosage: 140 MG PER CYCLE
     Dates: start: 20161012, end: 20161102

REACTIONS (2)
  - Blood creatinine increased [Recovering/Resolving]
  - Renal failure [Recovering/Resolving]

NARRATIVE: CASE EVENT DATE: 20161109
